FAERS Safety Report 5262851-3 (Version None)
Quarter: 2007Q1

REPORT INFORMATION
  Report Type: 
  Country: None (occurrence: None)
  Receive Date: 20061219
  Receipt Date: 20060922
  Transmission Date: 20070707
  Serious: No
  Sender: FDA-Public Use
  Company Number: 2006US001710

PATIENT
  Age: 64 Year
  Sex: Female

DRUGS (1)
  1. VESICARE [Suspect]
     Indication: MICTURITION URGENCY

REACTIONS (1)
  - DRUG INEFFECTIVE [None]
